FAERS Safety Report 12173824 (Version 2)
Quarter: 2016Q1

REPORT INFORMATION
  Report Type: Spontaneous
  Country: IT (occurrence: IT)
  Receive Date: 20160314
  Receipt Date: 20160322
  Transmission Date: 20160526
  Serious: Yes (Other)
  Sender: FDA-Public Use
  Company Number: IT-ACCORD-038617

PATIENT
  Age: 51 Year
  Sex: Male
  Weight: 78 kg

DRUGS (4)
  1. FLUOROURACIL. [Suspect]
     Active Substance: FLUOROURACIL
     Indication: ADENOCARCINOMA OF COLON
     Dosage: ALSO RECEIVED 4800 MG CYCLICAL INTRAVENOUS SOLUTION FOR INFUSION
     Route: 040
     Dates: start: 20151204
  2. ZALTRAP [Suspect]
     Active Substance: ZIV-AFLIBERCEPT
     Indication: ADENOCARCINOMA OF COLON
     Route: 042
     Dates: start: 20151204
  3. IRINOTECAN [Suspect]
     Active Substance: IRINOTECAN
     Indication: ADENOCARCINOMA OF COLON
     Route: 042
     Dates: start: 20151204
  4. FOLINIC ACID [Concomitant]
     Active Substance: LEUCOVORIN
     Indication: ADENOCARCINOMA OF COLON
     Route: 042
     Dates: start: 20151204, end: 20160218

REACTIONS (3)
  - Peripheral swelling [Recovering/Resolving]
  - Oedema peripheral [Unknown]
  - Constipation [Recovering/Resolving]

NARRATIVE: CASE EVENT DATE: 20151219
